FAERS Safety Report 9040821 (Version 1)
Quarter: 2013Q1

REPORT INFORMATION
  Report Type: Spontaneous
  Country: US (occurrence: None)
  Receive Date: 20130123
  Receipt Date: 20130123
  Transmission Date: 20140127
  Serious: Yes (Hospitalization)
  Sender: FDA-Public Use
  Company Number: None

PATIENT
  Age: 80 Year
  Sex: Male
  Weight: 76 kg

DRUGS (1)
  1. AZITHROMYCIN [Suspect]
     Indication: UPPER RESPIRATORY TRACT INFECTION
     Dosage: 500  MG EVERY DAY IV
     Route: 042
     Dates: start: 20121114, end: 20121116

REACTIONS (5)
  - Hot flush [None]
  - Nausea [None]
  - Respiratory distress [None]
  - Respiratory arrest [None]
  - Crepitations [None]
